FAERS Safety Report 22294459 (Version 2)
Quarter: 2023Q2

REPORT INFORMATION
  Report Type: Spontaneous
  Country: AU (occurrence: AU)
  Receive Date: 20230508
  Receipt Date: 20230523
  Transmission Date: 20230722
  Serious: No
  Sender: FDA-Public Use
  Company Number: AU-PFIZER INC-202300176649

PATIENT
  Age: 64 Year
  Sex: Male

DRUGS (2)
  1. PAXLOVID [Suspect]
     Active Substance: NIRMATRELVIR\RITONAVIR
     Indication: COVID-19 treatment
     Dosage: UNK
     Dates: start: 20230502, end: 20230506
  2. SERTRALINE [Concomitant]
     Active Substance: SERTRALINE HYDROCHLORIDE
     Indication: Depression
     Dosage: UNK

REACTIONS (4)
  - Emotional distress [Recovered/Resolved]
  - Rash pruritic [Not Recovered/Not Resolved]
  - Purpura [Not Recovered/Not Resolved]
  - Sensitivity to weather change [Unknown]

NARRATIVE: CASE EVENT DATE: 20230501
